FAERS Safety Report 9709931 (Version 7)
Quarter: 2014Q1

REPORT INFORMATION
  Report Type: Spontaneous
  Country: US (occurrence: US)
  Receive Date: 20131126
  Receipt Date: 20140218
  Transmission Date: 20141002
  Serious: Yes (Life-Threatening, Hospitalization, Other)
  Sender: FDA-Public Use
  Company Number: US-JNJFOC-20131114861

PATIENT
  Sex: Female
  Weight: 72.58 kg

DRUGS (9)
  1. XARELTO [Suspect]
     Indication: ANTICOAGULANT THERAPY
     Route: 048
     Dates: start: 20121205, end: 20121213
  2. KOMBIGLYZE [Concomitant]
     Indication: DIABETES MELLITUS
     Route: 065
  3. METOPROLOL [Concomitant]
     Indication: HYPERTENSION
     Route: 065
  4. EXFORGE [Concomitant]
     Indication: HYPERTENSION
     Route: 065
  5. SERTRALINE [Concomitant]
     Indication: DEPRESSION
     Route: 065
  6. OMEPRAZOLE [Concomitant]
     Indication: GASTROOESOPHAGEAL REFLUX DISEASE
     Route: 065
  7. IRON [Concomitant]
     Indication: IRON DEFICIENCY
     Route: 065
  8. VITAMIN B12 [Concomitant]
     Route: 065
  9. VITAMIN D [Concomitant]
     Route: 065

REACTIONS (2)
  - Upper gastrointestinal haemorrhage [Recovered/Resolved]
  - Oxygen saturation decreased [Recovered/Resolved]
